FAERS Safety Report 21059758 (Version 1)
Quarter: 2022Q3

REPORT INFORMATION
  Report Type: Spontaneous
  Country: US (occurrence: US)
  Receive Date: 20220708
  Receipt Date: 20220708
  Transmission Date: 20221027
  Serious: No
  Sender: FDA-Public Use
  Company Number: US-PFIZER INC-202200935236

PATIENT
  Age: 61 Year
  Sex: Female

DRUGS (1)
  1. DOXYCYCLINE CALCIUM [Suspect]
     Active Substance: DOXYCYCLINE CALCIUM
     Indication: Skin reaction
     Dosage: UNK

REACTIONS (4)
  - Allergic reaction to excipient [Unknown]
  - Paraesthesia [Unknown]
  - Burning sensation [Unknown]
  - Pharyngeal swelling [Unknown]

NARRATIVE: CASE EVENT DATE: 20200101
